FAERS Safety Report 8589242-1 (Version None)
Quarter: 2012Q3

REPORT INFORMATION
  Report Type: 
  Country: None (occurrence: None)
  Receive Date: 20120813
  Receipt Date: 20120802
  Transmission Date: 20120928
  Serious: Yes (Hospitalization, Other)
  Sender: FDA-Public Use
  Company Number: CN-GENZYME-CERZ-1002505

PATIENT
  Sex: Male
  Weight: 68 kg

DRUGS (2)
  1. CEREZYME [Suspect]
     Indication: GAUCHER'S DISEASE
     Dosage: 30 U/KG, Q2W
     Route: 042
     Dates: start: 20000101, end: 20091101
  2. CEREZYME [Suspect]
     Dosage: 10-15 U/KG, Q2W
     Route: 042
     Dates: start: 20090101, end: 20110101

REACTIONS (14)
  - SINUS TACHYCARDIA [None]
  - BACK PAIN [None]
  - SKIN HAEMORRHAGE [None]
  - WEIGHT DECREASED [None]
  - PAIN [None]
  - TACHYPNOEA [None]
  - TRICUSPID VALVE INCOMPETENCE [None]
  - DYSPNOEA [None]
  - DISEASE PROGRESSION [None]
  - DILATATION VENTRICULAR [None]
  - PLATELET COUNT DECREASED [None]
  - OEDEMA PERIPHERAL [None]
  - CHEST PAIN [None]
  - OBSTRUCTIVE AIRWAYS DISORDER [None]
